FAERS Safety Report 9918304 (Version 1)
Quarter: 2014Q1

REPORT INFORMATION
  Report Type: Report from Study
  Country: US (occurrence: US)
  Receive Date: 20140224
  Receipt Date: 20140224
  Transmission Date: 20141002
  Serious: Yes (Death)
  Sender: FDA-Public Use
  Company Number: US-ROCHE-1334009

PATIENT
  Sex: Male

DRUGS (6)
  1. AVASTIN [Suspect]
     Indication: BRAIN NEOPLASM MALIGNANT
     Dosage: INFUSED WITH NORMAL SALINE
     Route: 042
     Dates: start: 20111101
  2. AVASTIN [Suspect]
     Dosage: INFUSED WITH NORMAL SALINE
     Route: 042
     Dates: start: 20111122
  3. AVASTIN [Suspect]
     Dosage: INFUSED WITH NORMAL SALINE
     Route: 042
     Dates: start: 20111213
  4. AVASTIN [Suspect]
     Dosage: INFUSED WITH NORMAL SALINE
     Route: 042
     Dates: start: 20120103
  5. AVASTIN [Suspect]
     Dosage: INFUSED WITH NORMAL SALINE
     Route: 042
     Dates: start: 20110124
  6. AVASTIN [Suspect]
     Dosage: INFUSED WITH NORMAL SALINE.
     Route: 042
     Dates: start: 20120214

REACTIONS (8)
  - Death [Fatal]
  - Hearing impaired [Unknown]
  - Aphasia [Unknown]
  - Speech disorder [Unknown]
  - Nephrolithiasis [Unknown]
  - Hypokinesia [Unknown]
  - Headache [Recovered/Resolved]
  - Oedema peripheral [Unknown]
